FAERS Safety Report 5379120-3 (Version None)
Quarter: 2007Q3

REPORT INFORMATION
  Report Type: 
  Country: None (occurrence: None)
  Receive Date: 20070705
  Receipt Date: 20070702
  Transmission Date: 20080115
  Serious: No
  Sender: FDA-Public Use
  Company Number: CN-BRISTOL-MYERS SQUIBB COMPANY-13600713

PATIENT
  Sex: Female

DRUGS (1)
  1. NYSTATIN [Suspect]
     Indication: VAGINAL INFECTION
     Route: 067
     Dates: start: 20061001, end: 20061101

REACTIONS (3)
  - DRUG EXPOSURE DURING PREGNANCY [None]
  - NORMAL NEWBORN [None]
  - PREGNANCY [None]
